FAERS Safety Report 4333471-X (Version None)
Quarter: 2004Q1

REPORT INFORMATION
  Report Type: 
  Country: None (occurrence: None)
  Receive Date: 20040329
  Receipt Date: 20040209
  Transmission Date: 20041129
  Serious: No
  Sender: FDA-Public Use
  Company Number: 04P-163-0250102-00

PATIENT
  Age: 81 Year
  Sex: Female

DRUGS (8)
  1. HUMIRA [Suspect]
     Indication: RHEUMATOID ARTHRITIS
     Dates: start: 20031002, end: 20040202
  2. METHOTREXATE [Concomitant]
  3. PROVELLA-14 [Concomitant]
  4. LANSOPRAZOLE [Concomitant]
  5. NABUMETONE [Concomitant]
  6. LEVOTHYROXINE SODIUM [Concomitant]
  7. CETIRIZINE HCL [Concomitant]
  8. BENTREL [Concomitant]

REACTIONS (1)
  - GASTROENTERITIS VIRAL [None]
